FAERS Safety Report 23092442 (Version 1)
Quarter: 2023Q4

REPORT INFORMATION
  Report Type: Report from Study
  Country: AR (occurrence: AR)
  Receive Date: 20231021
  Receipt Date: 20231021
  Transmission Date: 20240110
  Serious: Yes (Hospitalization, Other)
  Sender: FDA-Public Use
  Company Number: AR-ABBVIE-5459082

PATIENT
  Age: 66 Year
  Sex: Male

DRUGS (1)
  1. HUMIRA [Suspect]
     Active Substance: ADALIMUMAB
     Indication: Psoriatic arthropathy
     Dosage: - FORM STRENGTH: 40 MG
     Route: 058
     Dates: start: 20140828

REACTIONS (6)
  - Cerebrovascular accident [Recovering/Resolving]
  - Blood glucose increased [Unknown]
  - Hypoaesthesia [Unknown]
  - Psoriatic arthropathy [Unknown]
  - Hypoaesthesia oral [Unknown]
  - Pain in extremity [Unknown]

NARRATIVE: CASE EVENT DATE: 20230901
